FAERS Safety Report 9087265 (Version 2)
Quarter: 2013Q2

REPORT INFORMATION
  Report Type: Spontaneous
  Country: US (occurrence: US)
  Receive Date: 20130131
  Receipt Date: 20130415
  Transmission Date: 20140414
  Serious: Yes (Other)
  Sender: FDA-Public Use
  Company Number: US-PFIZER INC-2013041173

PATIENT
  Age: 49 Year
  Sex: Female

DRUGS (2)
  1. EFFEXOR XR [Suspect]
     Dosage: 75 MG TAKE 3 CAPS DAILY
     Route: 048
  2. MOTRIN [Concomitant]
     Dosage: UNK

REACTIONS (2)
  - Foot fracture [Unknown]
  - Impaired work ability [Unknown]
